FAERS Safety Report 5279418-3 (Version None)
Quarter: 2007Q1

REPORT INFORMATION
  Report Type: 
  Country: None (occurrence: None)
  Receive Date: 20061213
  Receipt Date: 20060619
  Transmission Date: 20070707
  Serious: No
  Sender: FDA-Public Use
  Company Number: 2006UW12942

PATIENT
  Age: 50 Year
  Sex: Male
  Weight: 152.86 kg

DRUGS (3)
  1. SEROQUEL [Suspect]
     Indication: BIPOLAR DISORDER
     Dosage: 200 MG PO
     Route: 048
     Dates: end: 20060501
  2. SEROQUEL [Suspect]
     Indication: BIPOLAR DISORDER
     Dosage: 25 MG PO
     Route: 048
     Dates: start: 20051201
  3. CARDIZEM [Concomitant]

REACTIONS (5)
  - CHEST PAIN [None]
  - DIZZINESS [None]
  - DRUG LEVEL INCREASED [None]
  - HALLUCINATION [None]
  - PALPITATIONS [None]
